FAERS Safety Report 6035361-3 (Version None)
Quarter: 2009Q1

REPORT INFORMATION
  Report Type: 
  Country: None (occurrence: None)
  Receive Date: 20090109
  Receipt Date: 20090109
  Transmission Date: 20090719
  Serious: Yes (Other)
  Sender: FDA-Public Use
  Company Number: None

PATIENT
  Age: 34 Year
  Sex: Female
  Weight: 88.905 kg

DRUGS (1)
  1. TOPAMAX [Suspect]
     Indication: MIGRAINE WITH AURA
     Dosage: 1 TABLET 2CE DAILY PO
     Route: 048

REACTIONS (7)
  - AMNESIA [None]
  - COGNITIVE DISORDER [None]
  - DEPRESSION [None]
  - MEMORY IMPAIRMENT [None]
  - MENTAL DISORDER [None]
  - MOOD SWINGS [None]
  - THINKING ABNORMAL [None]
